FAERS Safety Report 10472435 (Version 1)
Quarter: 2014Q3

REPORT INFORMATION
  Report Type: Spontaneous
  Country: US (occurrence: None)
  Receive Date: 20140922
  Receipt Date: 20140922
  Transmission Date: 20150326
  Serious: Yes (Life-Threatening, Other)
  Sender: FDA-Public Use
  Company Number: ABR_01264_2013

PATIENT
  Age: 67 Year
  Sex: Male
  Weight: 88.91 kg

DRUGS (10)
  1. EDARBYCLOR [Suspect]
     Active Substance: AZILSARTAN KAMEDOXOMIL\CHLORTHALIDONE
     Indication: HYPERTENSION
     Dosage: ([80/12.5  ONCE DAILY] ORAL)
     Route: 048
     Dates: start: 20140603, end: 20140629
  2. BUMETANIDE. [Concomitant]
     Active Substance: BUMETANIDE
  3. CRESTOR [Concomitant]
     Active Substance: ROSUVASTATIN CALCIUM
  4. CARDVEDILOL [Concomitant]
  5. ASA [Concomitant]
     Active Substance: ASPIRIN
  6. SPIRONOLACTONE. [Concomitant]
     Active Substance: SPIRONOLACTONE
  7. PLAVIX [Concomitant]
     Active Substance: CLOPIDOGREL BISULFATE
  8. PANTOPRAZOLE [Concomitant]
     Active Substance: PANTOPRAZOLE SODIUM
  9. NIASPAN [Concomitant]
     Active Substance: NIACIN
  10. GABAPENTIN. [Concomitant]
     Active Substance: GABAPENTIN

REACTIONS (8)
  - Unresponsive to stimuli [None]
  - Mental status changes [None]
  - Confusional state [None]
  - Incoherent [None]
  - Dysstasia [None]
  - Pain [None]
  - Peripheral swelling [None]
  - Arrhythmia [None]

NARRATIVE: CASE EVENT DATE: 20130629
